FAERS Safety Report 10945346 (Version 3)
Quarter: 2015Q2

REPORT INFORMATION
  Report Type: Report from Study
  Country: DE (occurrence: DE)
  Receive Date: 20150323
  Receipt Date: 20150403
  Transmission Date: 20150821
  Serious: Yes (Hospitalization, Disabling)
  Sender: FDA-Public Use
  Company Number: DE-JNJFOC-20141117285

PATIENT
  Age: 13 Year
  Sex: Male
  Weight: 32 kg

DRUGS (10)
  1. POTASSIUM [Concomitant]
     Active Substance: POTASSIUM
     Route: 065
  2. VITAMIN B12 [Concomitant]
     Active Substance: CYANOCOBALAMIN
     Route: 065
  3. SODIUM SELENITE [Concomitant]
     Active Substance: SODIUM SELENITE
     Route: 065
  4. PANTOPRAZOLE [Concomitant]
     Active Substance: PANTOPRAZOLE SODIUM
     Route: 065
  5. 5-ASA [Concomitant]
     Active Substance: MESALAMINE
     Route: 048
  6. REMICADE [Suspect]
     Active Substance: INFLIXIMAB
     Indication: CROHN^S DISEASE
     Route: 042
     Dates: start: 20120419
  7. VITAMIN D [Concomitant]
     Active Substance: CHOLECALCIFEROL
     Route: 065
  8. MAGNESIUM [Concomitant]
     Active Substance: MAGNESIUM
     Route: 065
  9. NATRIUM HYDROGENCARBONATE [Concomitant]
     Route: 065
  10. PROBIOTICS [Concomitant]
     Active Substance: PROBIOTICS NOS
     Route: 065

REACTIONS (2)
  - Anastomotic ulcer [Not Recovered/Not Resolved]
  - Anastomotic stenosis [Not Recovered/Not Resolved]

NARRATIVE: CASE EVENT DATE: 201402
